FAERS Safety Report 23046271 (Version 1)
Quarter: 2023Q4

REPORT INFORMATION
  Report Type: Spontaneous
  Country: US (occurrence: US)
  Receive Date: 20231009
  Receipt Date: 20231009
  Transmission Date: 20240110
  Serious: No
  Sender: FDA-Public Use
  Company Number: US-AMGEN-USASP2023176277

PATIENT

DRUGS (1)
  1. PROLIA [Suspect]
     Active Substance: DENOSUMAB
     Indication: Osteoporosis
     Dosage: UNK
     Route: 065

REACTIONS (7)
  - Mobility decreased [Unknown]
  - Pain in jaw [Unknown]
  - Musculoskeletal stiffness [Unknown]
  - Trismus [Unknown]
  - Musculoskeletal chest pain [Unknown]
  - Bronchitis [Unknown]
  - Arthralgia [Unknown]
